FAERS Safety Report 9642411 (Version 1)
Quarter: 2013Q4

REPORT INFORMATION
  Report Type: Spontaneous
  Country: ES (occurrence: ES)
  Receive Date: 20131024
  Receipt Date: 20131024
  Transmission Date: 20140711
  Serious: Yes (Hospitalization)
  Sender: FDA-Public Use
  Company Number: ES-ROCHE-1292441

PATIENT
  Age: 58 Year
  Sex: Female

DRUGS (3)
  1. HERCEPTIN [Suspect]
     Indication: BREAST CANCER
     Dosage: FORM: 150MG POWDER FOR CONCENTRATE FOR SOLUTION FOR PERFUSION
     Route: 042
     Dates: start: 20130923, end: 20130923
  2. TAXOTERE [Interacting]
     Indication: BREAST CANCER
     Dosage: CONCENTRATE FOR SOLUTION FOR PERFUSION160MG/8ML
     Route: 042
     Dates: start: 20130923
  3. CARBOPLATIN [Interacting]
     Indication: BREAST CANCER
     Route: 042
     Dates: start: 20130923, end: 20130923

REACTIONS (3)
  - Febrile neutropenia [Recovering/Resolving]
  - Colitis [Recovering/Resolving]
  - Drug interaction [Unknown]
